FAERS Safety Report 10423012 (Version 2)
Quarter: 2014Q3

REPORT INFORMATION
  Report Type: Spontaneous
  Country: IT (occurrence: IT)
  Receive Date: 20140902
  Receipt Date: 20140905
  Transmission Date: 20150326
  Serious: Yes (Hospitalization)
  Sender: FDA-Public Use
  Company Number: PHHY2014IT105283

PATIENT
  Age: 59 Year
  Sex: Female

DRUGS (7)
  1. FEMARA [Suspect]
     Active Substance: LETROZOLE
     Indication: BREAST CANCER
     Dosage: 5 MG, BID
     Route: 048
     Dates: start: 20140728
  2. DIBASE [Suspect]
     Active Substance: CHOLECALCIFEROL
     Indication: BREAST CANCER
     Dosage: 20 DROPS,ONCE
     Route: 048
     Dates: start: 20140728
  3. DELTACORTENE [Suspect]
     Active Substance: PREDNISONE
     Indication: BREAST CANCER
     Dosage: 50 MG, BID
     Route: 048
     Dates: start: 20140728, end: 20140728
  4. XANAX [Suspect]
     Active Substance: ALPRAZOLAM
     Indication: ANXIETY
     Dosage: 1 MG, BID
     Route: 048
     Dates: start: 20140728
  5. PARACODINA [Suspect]
     Active Substance: ASPIRIN\CAFFEINE\DIHYDROCODEINE BITARTRATE
     Indication: BREAST CANCER
     Dosage: 40 DRP, BID
     Route: 048
     Dates: start: 20140728
  6. DILATREND [Suspect]
     Active Substance: CARVEDILOL
     Indication: HYPERTENSION
     Dosage: 50 MG, BID
     Route: 048
     Dates: start: 20140728
  7. LOSAPREX [Suspect]
     Active Substance: LOSARTAN POTASSIUM
     Indication: HYPERTENSION
     Dosage: 100 MG, BID
     Route: 048
     Dates: start: 20140728

REACTIONS (3)
  - Drug abuse [Recovered/Resolved]
  - Sopor [Unknown]
  - Somnolence [Recovered/Resolved]

NARRATIVE: CASE EVENT DATE: 20140728
